FAERS Safety Report 6533141-3 (Version None)
Quarter: 2010Q1

REPORT INFORMATION
  Report Type: 
  Country: None (occurrence: None)
  Receive Date: 20100111
  Receipt Date: 20100107
  Transmission Date: 20100710
  Serious: Yes (Other)
  Sender: FDA-Public Use
  Company Number: FR-ROCHE-612867

PATIENT
  Sex: Female
  Weight: 62 kg

DRUGS (11)
  1. BEVACIZUMAB [Suspect]
     Dosage: STRENGTH:25 MG/ML, ROUTE: INTRAVENOUS, FORM: SOLUTION FREQUENCY: 1 PER 3 WEEK (AS PER PROTOCOL).
     Route: 042
     Dates: start: 20070613
  2. ZOMETA [Suspect]
     Indication: DRUG USE FOR UNKNOWN INDICATION
     Route: 065
     Dates: start: 20070613, end: 20071015
  3. TAXOL [Concomitant]
     Dates: start: 20070601, end: 20071101
  4. PARIET [Concomitant]
     Dates: start: 20070501
  5. DAFALGAN [Concomitant]
     Dates: start: 20070501
  6. TOPALGIC [Concomitant]
     Dates: start: 20070501
  7. FEMARA [Concomitant]
     Dates: start: 20080703, end: 20090217
  8. LEXOMIL [Concomitant]
     Dates: start: 20070101
  9. RHINADVIL [Concomitant]
     Dates: start: 20090101
  10. TIAPAMIL [Concomitant]
     Dates: start: 20090101
  11. FASLODEX [Concomitant]
     Dates: start: 20090217

REACTIONS (1)
  - OSTEONECROSIS [None]
